FAERS Safety Report 7465907-X (Version None)
Quarter: 2011Q2

REPORT INFORMATION
  Report Type: 
  Country: None (occurrence: None)
  Receive Date: 20110509
  Receipt Date: 20100428
  Transmission Date: 20111010
  Serious: Yes (Other)
  Sender: FDA-Public Use
  Company Number: US-ALEXION-A201000356

PATIENT
  Sex: Female

DRUGS (8)
  1. SINGULAIR [Concomitant]
     Dosage: UNK
     Route: 048
  2. BENADRYL [Concomitant]
     Indication: PREMEDICATION
     Dosage: UNK
     Dates: start: 20100324
  3. FOLIC ACID [Concomitant]
     Dosage: UNK
     Route: 048
  4. SOLIRIS [Suspect]
     Indication: PAROXYSMAL NOCTURNAL HAEMOGLOBINURIA
     Dosage: 600 MG, UNK
     Route: 042
     Dates: start: 20100324
  5. TYLENOL (CAPLET) [Concomitant]
     Indication: PREMEDICATION
     Dosage: 325 MG, UNK
     Dates: start: 20100324
  6. PROTONIX [Concomitant]
     Dosage: UNK
     Route: 048
  7. SYNTHROID [Concomitant]
     Dosage: UNK
     Route: 048
  8. MULTI-VITAMINS [Concomitant]
     Dosage: UNK
     Route: 048

REACTIONS (4)
  - HEADACHE [None]
  - SINUSITIS [None]
  - SINUS HEADACHE [None]
  - RHINORRHOEA [None]
